FAERS Safety Report 8583800-6 (Version None)
Quarter: 2012Q3

REPORT INFORMATION
  Report Type: 
  Country: None (occurrence: None)
  Receive Date: 20120810
  Receipt Date: 20120730
  Transmission Date: 20120928
  Serious: Yes (Hospitalization, Other)
  Sender: FDA-Public Use
  Company Number: JP-009507513-1207JPN012871

PATIENT

DRUGS (6)
  1. DIFLAL [Concomitant]
     Indication: RASH
     Dosage: Q.S.
     Route: 061
     Dates: start: 20120611, end: 20120623
  2. REBETOL [Suspect]
     Indication: HEPATITIS C
     Route: 048
     Dates: start: 20120605, end: 20120608
  3. VOLTAREN [Concomitant]
     Indication: PROPHYLAXIS
     Dosage: 25MG/DAY, AS NEEDED
     Route: 054
     Dates: start: 20120605
  4. ALLEGRA [Concomitant]
     Indication: RASH
     Route: 048
     Dates: start: 20120608, end: 20120623
  5. PEG-INTRON [Suspect]
     Indication: HEPATITIS C
     Dosage: 1.5MCG/KG/WEEK
     Route: 058
     Dates: start: 20120605, end: 20120605
  6. TELAVIC [Suspect]
     Indication: HEPATITIS C
     Route: 048
     Dates: start: 20120605, end: 20120608

REACTIONS (2)
  - HYPERURICAEMIA [None]
  - RENAL DISORDER [None]
